FAERS Safety Report 8942156 (Version 1)
Quarter: 2012Q4

REPORT INFORMATION
  Report Type: 
  Country: US (occurrence: US)
  Receive Date: 20121130
  Receipt Date: 20121130
  Transmission Date: 20130627
  Serious: No
  Sender: FDA-Public Use
  Company Number: US-TEVA-373144USA

PATIENT
  Age: 23 Year
  Sex: Female

DRUGS (2)
  1. PLAN B ONE-STEP [Suspect]
     Indication: POST COITAL CONTRACEPTION
     Dosage: 1.5 Milligram Daily;
     Route: 048
     Dates: start: 20121125, end: 20121125
  2. NURTEL [Concomitant]
     Indication: CONTRACEPTION

REACTIONS (5)
  - Back pain [Not Recovered/Not Resolved]
  - Irritability [Not Recovered/Not Resolved]
  - Abdominal distension [Not Recovered/Not Resolved]
  - Fatigue [Not Recovered/Not Resolved]
  - Pelvic pain [Not Recovered/Not Resolved]
